FAERS Safety Report 13183276 (Version 1)
Quarter: 2017Q1

REPORT INFORMATION
  Report Type: Spontaneous
  Country: CA (occurrence: CA)
  Receive Date: 20170203
  Receipt Date: 20170203
  Transmission Date: 20170428
  Serious: Yes (Hospitalization)
  Sender: FDA-Public Use
  Company Number: CA-ENDO PHARMACEUTICALS INC-2017-000477

PATIENT
  Age: 73 Year
  Sex: Female

DRUGS (9)
  1. ROCURONIUM BROMIDE. [Suspect]
     Active Substance: ROCURONIUM BROMIDE
     Indication: ANAESTHESIA
     Dosage: 50 MG, UNKNOWN
     Route: 065
  2. ROCURONIUM BROMIDE. [Suspect]
     Active Substance: ROCURONIUM BROMIDE
     Dosage: 100 MG, UNKNOWN
     Route: 042
  3. ERGOCALCIFEROL. [Concomitant]
     Active Substance: ERGOCALCIFEROL
     Indication: PRODUCT USED FOR UNKNOWN INDICATION
     Dosage: UNK UNK, UNKNOWN
     Route: 065
  4. ASPIRIN                            /00002701/ [Concomitant]
     Active Substance: ASPIRIN
     Indication: PRODUCT USED FOR UNKNOWN INDICATION
     Dosage: UNK UNK, UNKNOWN
     Route: 065
  5. KETALAR [Suspect]
     Active Substance: KETAMINE HYDROCHLORIDE
     Indication: ANAESTHESIA
     Dosage: 25 MG, UNKNOWN
     Route: 042
  6. MIDAZOLAM [Suspect]
     Active Substance: MIDAZOLAM HYDROCHLORIDE
     Indication: ANAESTHESIA
     Dosage: 5 MG, UNKNOWN
     Route: 042
  7. SUFENTANIL [Suspect]
     Active Substance: SUFENTANIL
     Dosage: 25 ?G, UNKNOWN
     Route: 042
  8. SUFENTANIL [Suspect]
     Active Substance: SUFENTANIL
     Indication: ANAESTHESIA
     Dosage: 1 EVERY 1 HOUR (S)
     Route: 042
  9. SEVOFLURANE. [Suspect]
     Active Substance: SEVOFLURANE
     Indication: ANAESTHESIA
     Dosage: UNK UNK, UNKNOWN

REACTIONS (1)
  - Post procedural stroke [Recovered/Resolved]
